FAERS Safety Report 15517591 (Version 1)
Quarter: 2018Q4

REPORT INFORMATION
  Report Type: Spontaneous
  Country: US (occurrence: US)
  Receive Date: 20181018
  Receipt Date: 20181018
  Transmission Date: 20190205
  Serious: No
  Sender: FDA-Public Use
  Company Number: None

PATIENT
  Age: 39 Year
  Sex: Male
  Weight: 81.65 kg

DRUGS (1)
  1. KRATOM [Suspect]
     Active Substance: MITRAGYNINE\HERBALS
     Dates: start: 20181001, end: 20181016

REACTIONS (11)
  - Personality change [None]
  - Drug dependence [None]
  - Hyperhidrosis [None]
  - Agitation [None]
  - Tremor [None]
  - Cold sweat [None]
  - Thinking abnormal [None]
  - Vomiting [None]
  - Diarrhoea [None]
  - Irritability [None]
  - Withdrawal syndrome [None]
